FAERS Safety Report 8294636-8 (Version None)
Quarter: 2012Q2

REPORT INFORMATION
  Report Type: 
  Country: None (occurrence: None)
  Receive Date: 20120418
  Receipt Date: 20110615
  Transmission Date: 20120825
  Serious: No
  Sender: FDA-Public Use
  Company Number: US-ABBOTT-11P-163-0733481-00

PATIENT
  Age: 60 Year
  Sex: Female

DRUGS (2)
  1. ZEMPLAR [Suspect]
     Dates: start: 20110401
  2. ZEMPLAR [Suspect]
     Indication: HYPERPARATHYROIDISM SECONDARY
     Dates: start: 20090101, end: 20090101

REACTIONS (2)
  - DEPRESSION [None]
  - DIZZINESS [None]
